FAERS Safety Report 10220700 (Version 1)
Quarter: 2014Q2

REPORT INFORMATION
  Report Type: Spontaneous
  Country: US (occurrence: None)
  Receive Date: 20140605
  Receipt Date: 20140605
  Transmission Date: 20141212
  Serious: Yes (Disabling)
  Sender: FDA-Public Use
  Company Number: None

PATIENT
  Age: 68 Year
  Sex: Female

DRUGS (1)
  1. FLUOROMETHOLONE [Suspect]
     Indication: BLEPHARITIS
     Dosage: APPLY 2/3 X PER DAY
     Dates: start: 20130320, end: 20130321

REACTIONS (7)
  - Oral discomfort [None]
  - Eye pain [None]
  - Eye swelling [None]
  - Vision blurred [None]
  - Pruritus [None]
  - Urticaria [None]
  - Dysgeusia [None]
